FAERS Safety Report 12833978 (Version 1)
Quarter: 2016Q4

REPORT INFORMATION
  Report Type: Spontaneous
  Country: US (occurrence: US)
  Receive Date: 20161010
  Receipt Date: 20161010
  Transmission Date: 20170207
  Serious: No
  Sender: FDA-Public Use
  Company Number: US-BRECKENRIDGE PHARMACEUTICAL, INC.-1058165

PATIENT
  Age: 88 Year
  Sex: Female

DRUGS (1)
  1. EPINASTINE HYDROCHLORIDE. [Suspect]
     Active Substance: EPINASTINE HYDROCHLORIDE
     Route: 031
     Dates: start: 20160917, end: 20160920

REACTIONS (1)
  - Eye irritation [Recovered/Resolved]

NARRATIVE: CASE EVENT DATE: 20160917
